FAERS Safety Report 7576253-8 (Version None)
Quarter: 2011Q2

REPORT INFORMATION
  Report Type: 
  Country: None (occurrence: None)
  Receive Date: 20110628
  Receipt Date: 20110606
  Transmission Date: 20111010
  Serious: Yes (Hospitalization)
  Sender: FDA-Public Use
  Company Number: US-BAYER-201027368NA

PATIENT
  Age: 23 Year
  Sex: Female
  Weight: 104.31 kg

DRUGS (21)
  1. HYDREA [Concomitant]
     Dosage: 1000 MG, UNK
  2. FOLIC ACID [Concomitant]
     Indication: SICKLE CELL ANAEMIA
     Dosage: UNK
     Dates: start: 19840101
  3. COUMADIN [Concomitant]
     Dosage: UNK
     Dates: start: 20080101
  4. EFFEXOR [Concomitant]
     Indication: DEPRESSION
     Dosage: 100 MG, QD
  5. BENADRYL [Concomitant]
     Indication: NAUSEA
  6. EFFEXOR XR [Concomitant]
     Dosage: 75 MG, UNK
  7. TOPAMAX [Concomitant]
     Dosage: 150 MG, UNK
  8. NEXIUM [Concomitant]
     Indication: DYSPEPSIA
     Dosage: 40 MG, UNK
  9. PERCOCET [Concomitant]
     Dosage: UNK UNK, PRN
  10. TOPAMAX [Concomitant]
     Dosage: 100 MG, OM
  11. FENTORA [Concomitant]
  12. YASMIN [Suspect]
     Indication: ORAL CONTRACEPTION
     Dosage: UNK UNK, QD
     Route: 048
     Dates: start: 20020101, end: 20080101
  13. OXYCODONE HCL [Concomitant]
     Dosage: 5 MG, QD
  14. IBUPROFEN [Concomitant]
     Indication: PAIN
     Dosage: UNK
     Dates: start: 19980101
  15. ALBUTEROL SULFATE AUTOHALER [Concomitant]
     Indication: ASTHMA
     Dosage: UNK
     Dates: start: 20000101
  16. SUBOXONE [Concomitant]
     Indication: PAIN
     Dosage: 8 MG, PRN
  17. ACTIQ [Concomitant]
     Dosage: UNK
  18. METHADONE HCL [Concomitant]
     Indication: PAIN
     Dosage: 110 MG, BID
  19. TOPAMAX [Concomitant]
     Dosage: 200 MG, HS
  20. ZOFRAN [Concomitant]
     Indication: NAUSEA
     Dosage: 4 MG, BID
  21. EFFEXOR XR [Concomitant]
     Dosage: 150 MG, QD

REACTIONS (1)
  - PULMONARY EMBOLISM [None]
